FAERS Safety Report 5115431-4 (Version None)
Quarter: 2006Q3

REPORT INFORMATION
  Report Type: 
  Country: None (occurrence: None)
  Receive Date: 20060922
  Receipt Date: 20060908
  Transmission Date: 20061208
  Serious: Yes (Hospitalization)
  Sender: FDA-Public Use
  Company Number: 2006RL000068

PATIENT
  Age: 72 Year
  Sex: Male

DRUGS (8)
  1. NIZATIDINE [Suspect]
     Indication: GASTRIC ULCER
     Dosage: 300 MG; QD; PO
     Route: 048
     Dates: start: 20051128, end: 20051215
  2. RABEPRAZOLE SODIUM [Concomitant]
  3. CISPLATIN [Concomitant]
  4. IRINOTECAN HYDROCHLORIDE [Concomitant]
  5. GRANISETRON HYDROCHLORIDE [Concomitant]
  6. CARBAZOCHROME SODIUM SULFONATE [Concomitant]
  7. TRANEXAMIC ACID [Concomitant]
  8. AMBROXOL HYDROCHLORIDE [Concomitant]

REACTIONS (1)
  - PANCYTOPENIA [None]
